FAERS Safety Report 11156230 (Version 1)
Quarter: 2015Q2

REPORT INFORMATION
  Report Type: Spontaneous
  Country: RU (occurrence: RU)
  Receive Date: 20150602
  Receipt Date: 20150602
  Transmission Date: 20150821
  Serious: Yes (Other)
  Sender: FDA-Public Use
  Company Number: RU-JNJFOC-20150513741

PATIENT

DRUGS (2)
  1. DOXORUBICIN [Suspect]
     Active Substance: DOXORUBICIN
     Indication: BREAST CANCER
     Dosage: FOUR CYCLES
     Route: 042
  2. DOCETAXEL. [Suspect]
     Active Substance: DOCETAXEL
     Indication: BREAST CANCER
     Route: 042

REACTIONS (17)
  - Upper respiratory tract infection [Unknown]
  - Cervical dysplasia [Unknown]
  - Fatigue [Unknown]
  - Diarrhoea [Unknown]
  - Febrile neutropenia [Unknown]
  - Peripheral sensory neuropathy [Unknown]
  - Decreased appetite [Unknown]
  - Soft tissue necrosis [Unknown]
  - Alopecia [Unknown]
  - Anaemia [Unknown]
  - Bone pain [Unknown]
  - Leukopenia [Unknown]
  - Asthenia [Unknown]
  - Neutropenia [Unknown]
  - Nausea [Unknown]
  - Lymphopenia [Unknown]
  - Thrombocytopenia [Unknown]
